FAERS Safety Report 5574089-0 (Version None)
Quarter: 2007Q4

REPORT INFORMATION
  Report Type: 
  Country: None (occurrence: None)
  Receive Date: 20071221
  Receipt Date: 20071214
  Transmission Date: 20080405
  Serious: Yes (Death)
  Sender: FDA-Public Use
  Company Number: A-CH2007-17819

PATIENT
  Age: 65 Year
  Sex: Male

DRUGS (3)
  1. TRACLEER [Suspect]
     Indication: PULMONARY HYPERTENSION
     Dosage: 125 MG,BID,ORAL; 62.5 MG,BID,ORAL
     Route: 048
     Dates: start: 20050501, end: 20050601
  2. TRACLEER [Suspect]
     Indication: PULMONARY HYPERTENSION
     Dosage: 125 MG,BID,ORAL; 62.5 MG,BID,ORAL
     Route: 048
     Dates: start: 20050601, end: 20070801
  3. SILDENAFIL CITRATE [Concomitant]

REACTIONS (1)
  - PNEUMONIA [None]
